FAERS Safety Report 7671238-5 (Version None)
Quarter: 2011Q3

REPORT INFORMATION
  Report Type: 
  Country: None (occurrence: None)
  Receive Date: 20110809
  Receipt Date: 20110726
  Transmission Date: 20111222
  Serious: Yes (Hospitalization, Other)
  Sender: FDA-Public Use
  Company Number: US-ELI_LILLY_AND_COMPANY-US201104008045

PATIENT
  Sex: Female
  Weight: 64 kg

DRUGS (22)
  1. CYMBALTA [Concomitant]
  2. PERCOCET [Concomitant]
  3. SENNA [Concomitant]
  4. ASPIRIN [Concomitant]
  5. FISH OIL [Concomitant]
  6. CALTRATE + D [Concomitant]
  7. VITAMIN D [Concomitant]
     Dosage: 50000 IU, UNK
  8. DIOVAN [Concomitant]
  9. ZANAFLEX [Concomitant]
  10. SUPER B COMPLEX [Concomitant]
  11. FORTEO [Suspect]
     Dosage: 20 UG, QD
     Route: 058
  12. FORTEO [Suspect]
     Dosage: 20 UG, QD
     Route: 058
     Dates: end: 20110501
  13. DIGOXIN [Concomitant]
  14. TYLENOL (CAPLET) [Concomitant]
  15. VITAMIN E [Concomitant]
  16. LIPITOR [Concomitant]
  17. NAPROXEN [Concomitant]
  18. FORTEO [Suspect]
     Indication: OSTEOPOROSIS
     Dosage: 20 UG, QD
     Route: 058
     Dates: start: 20090330
  19. ATENOLOL [Concomitant]
  20. FLAXSEED OIL [Concomitant]
  21. ASCORBIC ACID [Concomitant]
  22. GARLIC [Concomitant]

REACTIONS (17)
  - PYREXIA [None]
  - PAIN [None]
  - PSEUDARTHROSIS [None]
  - PSEUDOMONAS INFECTION [None]
  - CALCIUM METABOLISM DISORDER [None]
  - WOUND INFECTION [None]
  - CLOSTRIDIAL INFECTION [None]
  - RENAL FAILURE ACUTE [None]
  - BACK PAIN [None]
  - DEVICE COMPONENT ISSUE [None]
  - DISCOMFORT [None]
  - BONE DEVELOPMENT ABNORMAL [None]
  - ADVERSE EVENT [None]
  - DEVICE RELATED INFECTION [None]
  - PNEUMONIA [None]
  - HYPERPARATHYROIDISM [None]
  - MOBILITY DECREASED [None]
